FAERS Safety Report 20778206 (Version 2)
Quarter: 2022Q3

REPORT INFORMATION
  Report Type: Spontaneous
  Country: US (occurrence: US)
  Receive Date: 20220503
  Receipt Date: 20220706
  Transmission Date: 20221026
  Serious: Yes (Other)
  Sender: FDA-Public Use
  Company Number: US-NOVARTISPH-NVSC2022US099676

PATIENT
  Age: 25 Year
  Sex: Female

DRUGS (4)
  1. AMPICILLIN [Suspect]
     Active Substance: AMPICILLIN
     Indication: Premature rupture of membranes
     Dosage: UNK
     Route: 042
  2. AMPICILLIN [Suspect]
     Active Substance: AMPICILLIN
     Indication: Amniotic cavity infection
     Dosage: UNK, ONCE/SINGLE
     Route: 065
  3. AZITHROMYCIN [Suspect]
     Active Substance: AZITHROMYCIN
     Indication: Premature rupture of membranes
     Dosage: UNK, ONCE/SINGLE
     Route: 065
  4. AMOXICILLIN [Suspect]
     Active Substance: AMOXICILLIN
     Indication: Premature rupture of membranes
     Dosage: UNK
     Route: 048

REACTIONS (4)
  - Premature delivery [Unknown]
  - Product use in unapproved indication [Unknown]
  - Delivery [Unknown]
  - Maternal exposure during pregnancy [Unknown]
